FAERS Safety Report 8477965-4 (Version None)
Quarter: 2012Q2

REPORT INFORMATION
  Report Type: 
  Country: None (occurrence: None)
  Receive Date: 20120629
  Receipt Date: 20120618
  Transmission Date: 20120825
  Serious: Yes (Life-Threatening, Hospitalization)
  Sender: FDA-Public Use
  Company Number: FR-BRISTOL-MYERS SQUIBB COMPANY-16698979

PATIENT
  Age: 67 Year
  Sex: Female

DRUGS (10)
  1. ACUPAN [Concomitant]
  2. GENTAMICIN [Concomitant]
     Dates: start: 20120603, end: 20120606
  3. OMEPRAZOLE [Concomitant]
  4. OXYCODONE HCL [Concomitant]
  5. RABEPRAZOLE SODIUM [Concomitant]
  6. LEVOTHYROXINE SODIUM [Concomitant]
  7. CEFEPIME [Suspect]
     Indication: OSTEOMYELITIS
     Route: 042
     Dates: start: 20120602, end: 20120606
  8. FOLIC ACID [Concomitant]
  9. PIPERACILLIN [Suspect]
     Indication: OSTEOMYELITIS
     Route: 042
     Dates: start: 20120604, end: 20120607
  10. VANCOMYCIN [Concomitant]
     Dates: start: 20120603

REACTIONS (5)
  - PANCYTOPENIA [None]
  - HYPOTENSION [None]
  - OVERDOSE [None]
  - RECTAL HAEMORRHAGE [None]
  - ENCEPHALOPATHY [None]
